FAERS Safety Report 4323637-7 (Version None)
Quarter: 2004Q1

REPORT INFORMATION
  Report Type: 
  Country: None (occurrence: None)
  Receive Date: 20040323
  Receipt Date: 20040309
  Transmission Date: 20041129
  Serious: Yes (Life-Threatening)
  Sender: FDA-Public Use
  Company Number: 2004SE00286

PATIENT
  Age: 75 Year
  Sex: Male
  Weight: 63 kg

DRUGS (4)
  1. BLOPRESS [Suspect]
     Indication: HYPERTENSION
     Dosage: 8 MG QD PO
     Route: 048
     Dates: start: 20031119, end: 20040113
  2. BLOPRESS [Suspect]
     Indication: HYPERTENSION
     Dosage: 8 MG BID PO
     Route: 048
     Dates: start: 20040114, end: 20040114
  3. GLICLAZIDE [Concomitant]
  4. ASPIRIN [Concomitant]

REACTIONS (2)
  - DRUG LEVEL INCREASED [None]
  - HYPOTENSION [None]
